FAERS Safety Report 13159468 (Version 8)
Quarter: 2017Q2

REPORT INFORMATION
  Report Type: Spontaneous
  Country: ES (occurrence: ES)
  Receive Date: 20170127
  Receipt Date: 20170413
  Transmission Date: 20170830
  Serious: Yes (Hospitalization)
  Sender: FDA-Public Use
  Company Number: ES-BIOGEN-2017BI00345752

PATIENT
  Age: 36 Year
  Sex: Female

DRUGS (2)
  1. FINGOLIMOD [Concomitant]
     Active Substance: FINGOLIMOD
     Indication: MULTIPLE SCLEROSIS
     Route: 065
     Dates: start: 201609
  2. TYSABRI [Suspect]
     Active Substance: NATALIZUMAB
     Indication: MULTIPLE SCLEROSIS
     Route: 042
     Dates: start: 20071218, end: 20160503

REACTIONS (2)
  - Progressive multifocal leukoencephalopathy [Not Recovered/Not Resolved]
  - Multiple sclerosis [Not Recovered/Not Resolved]
